FAERS Safety Report 11190313 (Version 1)
Quarter: 2015Q2

REPORT INFORMATION
  Report Type: Spontaneous
  Country: US (occurrence: US)
  Receive Date: 20150615
  Receipt Date: 20150615
  Transmission Date: 20150821
  Serious: Yes (Life-Threatening, Hospitalization, Other)
  Sender: FDA-Public Use
  Company Number: US-ELI_LILLY_AND_COMPANY-US201506004056

PATIENT
  Age: 57 Year
  Sex: Female

DRUGS (2)
  1. HUMALOG [Suspect]
     Active Substance: INSULIN LISPRO
     Indication: TYPE 2 DIABETES MELLITUS
     Dosage: UNK, PRN
     Route: 065
  2. HUMALOG [Suspect]
     Active Substance: INSULIN LISPRO
     Indication: TYPE 2 DIABETES MELLITUS
     Dosage: UNK UNK, PRN
     Route: 065

REACTIONS (9)
  - Cardiac arrest [Unknown]
  - Respiratory arrest [Unknown]
  - Fluid retention [Recovering/Resolving]
  - Pneumonia [Unknown]
  - Acute kidney injury [Unknown]
  - Memory impairment [Recovering/Resolving]
  - Cardiac failure congestive [Unknown]
  - Inappropriate schedule of drug administration [Unknown]
  - Cognitive disorder [Recovering/Resolving]

NARRATIVE: CASE EVENT DATE: 201501
